FAERS Safety Report 7460027-2 (Version None)
Quarter: 2011Q2

REPORT INFORMATION
  Report Type: 
  Country: None (occurrence: None)
  Receive Date: 20110505
  Receipt Date: 20110426
  Transmission Date: 20111010
  Serious: Yes (Hospitalization, Other)
  Sender: FDA-Public Use
  Company Number: PHFR2010GB06068

PATIENT
  Sex: Male

DRUGS (3)
  1. CLOZARIL [Suspect]
     Dosage: 75 MG, UNK
     Route: 048
  2. CLOZARIL [Suspect]
     Indication: SCHIZOPHRENIA
     Dosage: 775 MG, UNK
     Route: 048
     Dates: start: 20030924
  3. CLOZARIL [Suspect]
     Dosage: 600 MG, QD
     Route: 048
     Dates: start: 20030924

REACTIONS (4)
  - PNEUMONIA [None]
  - H1N1 INFLUENZA [None]
  - DECUBITUS ULCER [None]
  - DRUG LEVEL INCREASED [None]
